FAERS Safety Report 14773567 (Version 2)
Quarter: 2018Q2

REPORT INFORMATION
  Report Type: Spontaneous
  Country: ES (occurrence: ES)
  Receive Date: 20180418
  Receipt Date: 20180430
  Transmission Date: 20180711
  Serious: Yes (Death, Hospitalization, Other)
  Sender: FDA-Public Use
  Company Number: PHHY2018ES061772

PATIENT
  Age: 69 Year
  Sex: Male

DRUGS (1)
  1. VOTRIENT [Suspect]
     Active Substance: PAZOPANIB HYDROCHLORIDE
     Indication: RENAL CANCER METASTATIC
     Dosage: 800 MG, UNK
     Route: 048
     Dates: start: 20180308, end: 20180326

REACTIONS (9)
  - Thrombocytopenia [Recovered/Resolved]
  - Malignant neoplasm progression [Unknown]
  - Contusion [Unknown]
  - Haematoma [Unknown]
  - Haematuria [Unknown]
  - Anaemia [Unknown]
  - Disseminated intravascular coagulation [Fatal]
  - Renal cancer metastatic [Unknown]
  - Haemorrhage [Fatal]

NARRATIVE: CASE EVENT DATE: 20180322
